FAERS Safety Report 9940901 (Version 2)
Quarter: 2014Q2

REPORT INFORMATION
  Report Type: Report from Study
  Country: CA (occurrence: CA)
  Receive Date: 20140303
  Receipt Date: 20140402
  Transmission Date: 20141212
  Serious: Yes (Other)
  Sender: FDA-Public Use
  Company Number: CA-JNJFOC-20140216607

PATIENT
  Age: 50 Year
  Sex: Female
  Weight: 50 kg

DRUGS (6)
  1. REMICADE [Suspect]
     Indication: CROHN^S DISEASE
     Route: 042
  2. REMICADE [Suspect]
     Indication: CROHN^S DISEASE
     Route: 042
     Dates: start: 20140114
  3. REMICADE [Suspect]
     Indication: CROHN^S DISEASE
     Route: 042
     Dates: start: 20071022
  4. FLOVENT [Concomitant]
     Dosage: 125, 4 INH
     Route: 065
  5. VENTOLIN [Concomitant]
     Dosage: 2 INH WITH 4 INH
     Route: 065
  6. PANTOLOC [Concomitant]
     Route: 065

REACTIONS (3)
  - Anastomotic stenosis [Recovering/Resolving]
  - Crohn^s disease [Recovering/Resolving]
  - Chronic sinusitis [Unknown]
